FAERS Safety Report 9412805 (Version 1)
Quarter: 2013Q3

REPORT INFORMATION
  Report Type: Report from Study
  Country: VE (occurrence: VE)
  Receive Date: 20130722
  Receipt Date: 20130722
  Transmission Date: 20140515
  Serious: Yes (Other)
  Sender: FDA-Public Use
  Company Number: VE-ABBOTT-13P-178-1122227-00

PATIENT
  Age: 30 Year
  Sex: 0
  Weight: 96 kg

DRUGS (1)
  1. HUMIRA [Suspect]
     Indication: PSORIASIS
     Route: 058
     Dates: start: 2010, end: 201305

REACTIONS (2)
  - Ectopic pregnancy [Unknown]
  - Unintended pregnancy [Unknown]
